FAERS Safety Report 7644132-3 (Version None)
Quarter: 2011Q3

REPORT INFORMATION
  Report Type: 
  Country: None (occurrence: None)
  Receive Date: 20110729
  Receipt Date: 20110726
  Transmission Date: 20111222
  Serious: Yes (Life-Threatening)
  Sender: FDA-Public Use
  Company Number: FR-B.I. PHARMACEUTICALS,INC./RIDGEFIELD-2011-FF-00565FF

PATIENT
  Sex: Female
  Weight: 67 kg

DRUGS (5)
  1. FORLAX [Concomitant]
     Indication: CONSTIPATION
     Route: 048
     Dates: start: 20110601, end: 20110608
  2. MORPHINE SULFATE [Concomitant]
     Indication: SLEEP DISORDER
     Route: 048
     Dates: start: 20110601, end: 20110608
  3. PRADAXA [Suspect]
     Indication: PROPHYLAXIS
     Dosage: 220 MG
     Route: 048
     Dates: start: 20110601, end: 20110601
  4. TRAMADOL HCL [Concomitant]
     Indication: PAIN
     Dosage: 200 MG
     Route: 042
     Dates: start: 20110531
  5. MORPHINE [Concomitant]
     Indication: PAIN
     Dosage: 30 MG
     Dates: start: 20110531, end: 20110602

REACTIONS (1)
  - DEEP VEIN THROMBOSIS [None]
